FAERS Safety Report 4942477-9 (Version None)
Quarter: 2006Q1

REPORT INFORMATION
  Report Type: 
  Country: None (occurrence: None)
  Receive Date: 20060313
  Receipt Date: 20050307
  Transmission Date: 20060701
  Serious: No
  Sender: FDA-Public Use
  Company Number: US-GLAXOSMITHKLINE-A0548584A

PATIENT
  Age: 61 Year
  Sex: Male

DRUGS (3)
  1. NICORETTE [Suspect]
     Route: 002
     Dates: start: 20020101, end: 20020101
  2. NICORETTE (MINT) [Suspect]
     Route: 002
  3. NICORETTE (MINT) [Suspect]
     Route: 002

REACTIONS (6)
  - BREATH ODOUR [None]
  - DRUG ABUSER [None]
  - FEELING ABNORMAL [None]
  - INTENTIONAL DRUG MISUSE [None]
  - NAUSEA [None]
  - NICOTINE DEPENDENCE [None]
